FAERS Safety Report 6583924-9 (Version None)
Quarter: 2010Q1

REPORT INFORMATION
  Report Type: 
  Country: None (occurrence: None)
  Receive Date: 20100213
  Receipt Date: 20100213
  Transmission Date: 20100710
  Serious: No
  Sender: FDA-Public Use
  Company Number: None

PATIENT
  Age: 40 Year
  Sex: Female
  Weight: 61.2356 kg

DRUGS (2)
  1. KLONOPIN [Suspect]
     Dosage: .5MG 230 PILLS-330 DAYS PO
     Route: 048
     Dates: start: 20050824, end: 20060723
  2. KLONOPIN [Concomitant]

REACTIONS (11)
  - DIZZINESS [None]
  - ILLUSION [None]
  - INSOMNIA [None]
  - MOTION SICKNESS [None]
  - MUSCLE TWITCHING [None]
  - NAUSEA [None]
  - NEUROLOGICAL SYMPTOM [None]
  - PALPITATIONS [None]
  - SYNCOPE [None]
  - TENSION HEADACHE [None]
  - WITHDRAWAL SYNDROME [None]
